FAERS Safety Report 7817190-0 (Version None)
Quarter: 2011Q4

REPORT INFORMATION
  Report Type: 
  Country: None (occurrence: None)
  Receive Date: 20111017
  Receipt Date: 20111017
  Transmission Date: 20120403
  Serious: No
  Sender: FDA-Public Use
  Company Number: None

PATIENT
  Sex: Female
  Weight: 99.336 kg

DRUGS (6)
  1. DETROL [Concomitant]
     Route: 048
  2. ZANTAC [Concomitant]
     Route: 048
  3. ASPIRIN [Concomitant]
     Route: 048
  4. TRAZODONE HCL [Concomitant]
     Route: 048
  5. METOPROLOL TARTRATE [Suspect]
     Indication: ATRIAL FIBRILLATION
     Dosage: ONE
     Route: 048
     Dates: start: 20091227, end: 20111016
  6. AZOR 5/20 [Concomitant]
     Route: 048

REACTIONS (1)
  - AGEUSIA [None]
